FAERS Safety Report 23853533 (Version 1)
Quarter: 2024Q2

REPORT INFORMATION
  Report Type: Spontaneous
  Country: US (occurrence: None)
  Receive Date: 20240513
  Receipt Date: 20240513
  Transmission Date: 20240716
  Serious: Yes (unspecified)
  Sender: FDA-Public Use
  Company Number: None

PATIENT
  Age: 51 Year
  Sex: Female

DRUGS (1)
  1. SKYRIZI [Suspect]
     Active Substance: RISANKIZUMAB-RZAA
     Indication: Psoriasis
     Dosage: 150MG Q 12 WEEKS?

REACTIONS (6)
  - Mood swings [None]
  - Brain fog [None]
  - Alopecia [None]
  - Back pain [None]
  - Abdominal pain [None]
  - Fatigue [None]
